FAERS Safety Report 10034878 (Version 2)
Quarter: 2014Q2

REPORT INFORMATION
  Report Type: Spontaneous
  Country: US (occurrence: US)
  Receive Date: 20140325
  Receipt Date: 20140509
  Transmission Date: 20141212
  Serious: Yes (Hospitalization)
  Sender: FDA-Public Use
  Company Number: US-SA-2014SA033441

PATIENT
  Sex: Female

DRUGS (1)
  1. AUVI-Q [Suspect]
     Indication: HYPERSENSITIVITY
     Route: 065

REACTIONS (1)
  - Anaphylactic reaction [Unknown]
